FAERS Safety Report 19012306 (Version 1)
Quarter: 2021Q1

REPORT INFORMATION
  Report Type: Spontaneous
  Country: PL (occurrence: PL)
  Receive Date: 20210316
  Receipt Date: 20210316
  Transmission Date: 20210420
  Serious: Yes (Hospitalization)
  Sender: FDA-Public Use
  Company Number: PL-TEVA-2021-PL-1891867

PATIENT
  Age: 74 Year
  Sex: Male

DRUGS (8)
  1. BISOPROLOL [Suspect]
     Active Substance: BISOPROLOL
     Indication: PRODUCT USED FOR UNKNOWN INDICATION
     Route: 065
  2. POTASSIUM [Concomitant]
     Active Substance: POTASSIUM
     Indication: PRODUCT USED FOR UNKNOWN INDICATION
     Dosage: 2 DOSAGE FORMS DAILY;
     Route: 065
  3. EPLERENONE. [Concomitant]
     Active Substance: EPLERENONE
     Indication: PRODUCT USED FOR UNKNOWN INDICATION
     Route: 065
  4. ATORVASTATIN [Suspect]
     Active Substance: ATORVASTATIN
     Indication: PRODUCT USED FOR UNKNOWN INDICATION
     Route: 065
  5. ACETYLSALICYLIC ACID [Suspect]
     Active Substance: ASPIRIN
     Indication: PRODUCT USED FOR UNKNOWN INDICATION
     Route: 065
  6. FUROSEMIDE. [Concomitant]
     Active Substance: FUROSEMIDE
     Indication: PRODUCT USED FOR UNKNOWN INDICATION
     Dosage: 80 MILLIGRAM DAILY; 160?100 MG/24 H IN THE FIRST DAYS
     Route: 042
  7. RAMIPRIL. [Suspect]
     Active Substance: RAMIPRIL
     Indication: PRODUCT USED FOR UNKNOWN INDICATION
     Route: 065
  8. DOXAZOSIN [Concomitant]
     Active Substance: DOXAZOSIN MESYLATE
     Indication: PRODUCT USED FOR UNKNOWN INDICATION
     Dosage: 4 MILLIGRAM DAILY;
     Route: 065

REACTIONS (18)
  - Ejection fraction decreased [Unknown]
  - Dyspnoea at rest [Unknown]
  - Hepatomegaly [Unknown]
  - Cardiac failure chronic [Unknown]
  - Jugular vein distension [Unknown]
  - Ascites [Unknown]
  - Left ventricular hypertrophy [Unknown]
  - Rales [Unknown]
  - Mitral valve incompetence [Unknown]
  - Laboratory test abnormal [Unknown]
  - Cardiac murmur [Unknown]
  - Abnormal precordial movement [Unknown]
  - Orthopnoea [Unknown]
  - Abdominal distension [Unknown]
  - Peripheral swelling [Unknown]
  - Oedema peripheral [Unknown]
  - Cardiac failure [Unknown]
  - Dyspnoea exertional [Unknown]
